FAERS Safety Report 6193272-7 (Version None)
Quarter: 2009Q2

REPORT INFORMATION
  Report Type: 
  Country: None (occurrence: None)
  Receive Date: 20090518
  Receipt Date: 20090511
  Transmission Date: 20091009
  Serious: Yes (Hospitalization)
  Sender: FDA-Public Use
  Company Number: B0573051A

PATIENT
  Age: 54 Year
  Sex: Female

DRUGS (2)
  1. ZEFIX [Suspect]
     Indication: HEPATITIS B
     Dosage: 50MG PER DAY
     Route: 048
     Dates: start: 20050101
  2. HEPSERA [Suspect]
     Indication: HEPATITIS B
     Dosage: 5MG PER DAY
     Route: 048
     Dates: start: 20050101

REACTIONS (4)
  - ACIDOSIS [None]
  - HYPOKALAEMIA [None]
  - RENAL IMPAIRMENT [None]
  - RENAL TUBULAR DISORDER [None]
